FAERS Safety Report 9225574 (Version 1)
Quarter: 2013Q2

REPORT INFORMATION
  Report Type: Spontaneous
  Country: US (occurrence: US)
  Receive Date: 20130411
  Receipt Date: 20130411
  Transmission Date: 20140414
  Serious: Yes (Other)
  Sender: FDA-Public Use
  Company Number: US-ROCHE-1209801

PATIENT
  Age: 43 Day
  Sex: Male

DRUGS (4)
  1. ACTILYSE [Suspect]
     Indication: CORONARY ARTERY THROMBOSIS
     Dosage: 1 MG INTO LCA, APPROXIMATELY 0.4 MG
     Route: 065
  2. ASPIRIN [Concomitant]
     Route: 065
  3. MYCOSTATIN [Concomitant]
  4. SODIUM HEPARIN [Concomitant]

REACTIONS (2)
  - Electrocardiogram ST segment depression [Recovered/Resolved]
  - Bradycardia [Recovered/Resolved]
